FAERS Safety Report 13937515 (Version 1)
Quarter: 2017Q3

REPORT INFORMATION
  Report Type: Spontaneous
  Country: US (occurrence: US)
  Receive Date: 20170905
  Receipt Date: 20170905
  Transmission Date: 20171127
  Serious: No
  Sender: FDA-Public Use
  Company Number: US-PFIZER INC-2017342041

PATIENT
  Age: 15 Year
  Sex: Male
  Weight: 62 kg

DRUGS (1)
  1. GENOTROPIN MQ [Suspect]
     Active Substance: SOMATROPIN
     Indication: PRADER-WILLI SYNDROME
     Dosage: 1 MG, 1X/DAY
     Dates: start: 20170801, end: 20170823

REACTIONS (4)
  - Abnormal behaviour [Unknown]
  - Drug dose omission [Unknown]
  - Decreased eye contact [Not Recovered/Not Resolved]
  - Speech disorder [Not Recovered/Not Resolved]

NARRATIVE: CASE EVENT DATE: 20170815
